FAERS Safety Report 10989751 (Version 1)
Quarter: 2015Q2

REPORT INFORMATION
  Report Type: Report from Study
  Country: SE (occurrence: SE)
  Receive Date: 20150406
  Receipt Date: 20150406
  Transmission Date: 20150821
  Serious: Yes (Other)
  Sender: FDA-Public Use
  Company Number: SE-JNJFOC-20150322026

PATIENT
  Age: 73 Year
  Sex: Male

DRUGS (9)
  1. DIMOR [Concomitant]
     Active Substance: LOPERAMIDE
  2. IMDUR [Concomitant]
     Active Substance: ISOSORBIDE MONONITRATE
  3. DOLCONTIN [Concomitant]
     Active Substance: MORPHINE
  4. MORPHINE [Concomitant]
     Active Substance: MORPHINE
  5. ALENDRONAT [Concomitant]
     Active Substance: ALENDRONATE SODIUM
     Dates: start: 201503
  6. CILAXORAL [Concomitant]
  7. IBRUTINIB [Suspect]
     Active Substance: IBRUTINIB
     Indication: PRODUCT USED FOR UNKNOWN INDICATION
     Route: 048
     Dates: start: 201412
  8. CALCICHEW [Concomitant]
     Active Substance: CALCIUM CARBONATE
     Dates: start: 201503
  9. DUPHALAC [Concomitant]
     Active Substance: LACTULOSE

REACTIONS (2)
  - Hepatitis [Not Recovered/Not Resolved]
  - Hepatic enzyme increased [Not Recovered/Not Resolved]

NARRATIVE: CASE EVENT DATE: 20150320
